FAERS Safety Report 7323882-2 (Version None)
Quarter: 2011Q1

REPORT INFORMATION
  Report Type: 
  Country: None (occurrence: None)
  Receive Date: 20110301
  Receipt Date: 20110224
  Transmission Date: 20110831
  Serious: Yes (Other)
  Sender: FDA-Public Use
  Company Number: A0915560A

PATIENT
  Sex: Male

DRUGS (1)
  1. PROMACTA [Suspect]
     Dates: start: 20100908, end: 20101006

REACTIONS (6)
  - ABDOMINAL PAIN UPPER [None]
  - DRUG INEFFECTIVE [None]
  - DIARRHOEA [None]
  - VOMITING [None]
  - LIVER DISORDER [None]
  - DECREASED APPETITE [None]
